FAERS Safety Report 15275985 (Version 1)
Quarter: 2018Q3

REPORT INFORMATION
  Report Type: Spontaneous
  Country: US (occurrence: US)
  Receive Date: 20180814
  Receipt Date: 20180814
  Transmission Date: 20181010
  Serious: No
  Sender: FDA-Public Use
  Company Number: US-ASTRAZENECA-2018SE95286

PATIENT
  Age: 61 Year
  Sex: Female
  Weight: 122.5 kg

DRUGS (2)
  1. SYMBICORT [Suspect]
     Active Substance: BUDESONIDE\FORMOTEROL FUMARATE DIHYDRATE
     Indication: DYSPNOEA
     Dosage: 160/4.5MCG, TWO INHALATIONS IN THE MORNING AND TWO INHALATIONS IN THE EVENING
     Route: 055
     Dates: start: 2015
  2. ALBUTEROL. [Concomitant]
     Active Substance: ALBUTEROL
     Indication: INHALATION THERAPY
     Dosage: AS REQUIRED
     Route: 055
     Dates: start: 2008

REACTIONS (6)
  - Chest discomfort [Recovering/Resolving]
  - Product use in unapproved indication [Unknown]
  - Intentional device misuse [Recovering/Resolving]
  - Wheezing [Recovering/Resolving]
  - Asthma [Recovering/Resolving]
  - Off label use [Recovering/Resolving]

NARRATIVE: CASE EVENT DATE: 2015
